FAERS Safety Report 8517208-6 (Version None)
Quarter: 2012Q3

REPORT INFORMATION
  Report Type: 
  Country: None (occurrence: None)
  Receive Date: 20120706
  Receipt Date: 20120622
  Transmission Date: 20120928
  Serious: Yes (Life-Threatening)
  Sender: FDA-Public Use
  Company Number: 1330934

PATIENT
  Age: 39 Year
  Sex: Female
  Weight: 94 kg

DRUGS (5)
  1. DEXAMETHASONE [Concomitant]
  2. (TRASTUZUMAB) [Concomitant]
  3. GRANISETRON [Concomitant]
  4. DOCETAXEL [Suspect]
     Indication: BREAST CANCER
     Dosage: 190 MG MILLIGRAM(S), INTRAVENOUS DRIP
     Route: 041
     Dates: start: 20120518
  5. SODIUM CHLORIDE [Concomitant]

REACTIONS (4)
  - DYSPNOEA [None]
  - THROAT TIGHTNESS [None]
  - PHARYNGEAL OEDEMA [None]
  - HYPERSENSITIVITY [None]
